FAERS Safety Report 10152871 (Version 2)
Quarter: 2014Q2

REPORT INFORMATION
  Report Type: Report from Study
  Country: CN (occurrence: CN)
  Receive Date: 20140505
  Receipt Date: 20140507
  Transmission Date: 20141212
  Serious: Yes (Hospitalization)
  Sender: FDA-Public Use
  Company Number: PHHO2014CN006410

PATIENT
  Age: 25 Year
  Sex: Female
  Weight: 55 kg

DRUGS (1)
  1. ICL670A [Suspect]
     Indication: THALASSAEMIA
     Dosage: 10 MG/KG, QD
     Route: 048
     Dates: start: 20131202

REACTIONS (1)
  - Thalassaemia alpha [Recovering/Resolving]
